FAERS Safety Report 24068796 (Version 1)
Quarter: 2024Q3

REPORT INFORMATION
  Report Type: Report from Study
  Country: CA (occurrence: CA)
  Receive Date: 20240710
  Receipt Date: 20240710
  Transmission Date: 20241016
  Serious: Yes (Other)
  Sender: CELLTRION
  Company Number: CA-CELLTRION INC.-2024CA016007

PATIENT

DRUGS (4)
  1. ADALIMUMAB [Suspect]
     Active Substance: ADALIMUMAB\ISOPROPYL ALCOHOL
     Indication: Ankylosing spondylitis
     Dosage: 40.0 MILLIGRAM 1 EVERY 2 WEEKS
     Route: 065
  2. ADALIMUMAB [Suspect]
     Active Substance: ADALIMUMAB\ISOPROPYL ALCOHOL
     Dosage: 40.0 MILLIGRAM 1 EVERY 1 WEEKS
     Route: 065
  3. MESALAMINE [Suspect]
     Active Substance: MESALAMINE
     Indication: Product used for unknown indication
     Dosage: 2.4 GRAM, 1 EVERY 1 DAYS
     Route: 065
  4. MESALAMINE [Suspect]
     Active Substance: MESALAMINE
     Indication: Product used for unknown indication
     Dosage: 1.2 GRAM, 1 EVERY 1 DAYS
     Route: 065

REACTIONS (7)
  - Ankylosing spondylitis [Recovering/Resolving]
  - Drug level decreased [Recovering/Resolving]
  - Inflammatory bowel disease [Recovering/Resolving]
  - Stress [Recovering/Resolving]
  - Transaminases increased [Recovering/Resolving]
  - Therapeutic response shortened [Recovering/Resolving]
  - Intentional product use issue [Unknown]
